FAERS Safety Report 6615108-X (Version None)
Quarter: 2010Q1

REPORT INFORMATION
  Report Type: 
  Country: None (occurrence: None)
  Receive Date: 20100305
  Receipt Date: 20100225
  Transmission Date: 20100710
  Serious: Yes (Other)
  Sender: FDA-Public Use
  Company Number: RU-ASTRAZENECA-2010SE08568

PATIENT
  Age: 17728 Day
  Sex: Male
  Weight: 65 kg

DRUGS (15)
  1. DIPRIVAN [Suspect]
     Indication: GENERAL ANAESTHESIA
     Route: 042
     Dates: start: 20100218, end: 20100218
  2. PHENAZEPAM [Concomitant]
     Indication: PREMEDICATION
     Dosage: STANDARD
     Route: 048
     Dates: start: 20100217, end: 20100218
  3. CEFAZOLIN [Concomitant]
     Indication: ANTIBIOTIC PROPHYLAXIS
     Dosage: STANDARD
     Route: 042
     Dates: start: 20100218, end: 20100218
  4. FENTANYL [Concomitant]
     Indication: ANAESTHETIC PREMEDICATION
     Dosage: STANDARD
     Route: 048
     Dates: start: 20100218, end: 20100218
  5. ATROPINE [Concomitant]
     Indication: ANAESTHETIC PREMEDICATION
     Dosage: STANDARD
     Route: 042
     Dates: start: 20100218, end: 20100218
  6. DIMEDROL [Concomitant]
     Indication: ANAESTHETIC PREMEDICATION
     Dosage: STANDARD
     Route: 042
     Dates: start: 20100218, end: 20100218
  7. SIBAZON [Concomitant]
     Indication: ANAESTHETIC PREMEDICATION
     Dosage: STANDARD
     Route: 042
     Dates: start: 20100218, end: 20100218
  8. DORMICUM [Concomitant]
     Indication: INDUCTION OF ANAESTHESIA
     Dosage: STANDARD
     Route: 042
     Dates: start: 20100218, end: 20100218
  9. KETAMINE HCL [Concomitant]
     Indication: INDUCTION OF ANAESTHESIA
     Dosage: STANDARD
     Route: 042
     Dates: start: 20100218, end: 20100218
  10. DITHYLIN [Concomitant]
     Indication: PARALYSIS
     Dosage: STANDARD
     Route: 042
     Dates: start: 20100218, end: 20100218
  11. ARDUAN [Concomitant]
     Indication: PARALYSIS
     Dosage: STANDARD
     Route: 042
     Dates: start: 20100218, end: 20100218
  12. ANEXAT [Concomitant]
     Indication: THERAPEUTIC AGENT TOXICITY
     Dosage: STANDARD
     Route: 042
     Dates: start: 20100218, end: 20100218
  13. ISOTONIC SOLUTION OF NACL [Concomitant]
     Indication: HYPOVOLAEMIA
     Dosage: STANDARD
     Route: 042
     Dates: start: 20100218, end: 20100218
  14. HEMOHES [Concomitant]
     Indication: HYPOVOLAEMIA
     Dosage: STANDARD
     Route: 042
     Dates: start: 20100218, end: 20100218
  15. AUTOPLASMA [Concomitant]
     Indication: HYPOVOLAEMIA
     Dosage: STANDARD
     Route: 042
     Dates: start: 20100218, end: 20100218

REACTIONS (2)
  - HYPOTONIA [None]
  - RASH PAPULAR [None]
